FAERS Safety Report 11825651 (Version 8)
Quarter: 2018Q3

REPORT INFORMATION
  Report Type: Spontaneous
  Country: US (occurrence: US)
  Receive Date: 20151211
  Receipt Date: 20180830
  Transmission Date: 20181010
  Serious: Yes (Other)
  Sender: FDA-Public Use
  Company Number: US-JNJFOC-20150713249

PATIENT
  Age: 75 Year
  Sex: Male

DRUGS (23)
  1. LISINOPRIL. [Concomitant]
     Active Substance: LISINOPRIL
  2. ZYRTEC [Concomitant]
     Active Substance: CETIRIZINE HYDROCHLORIDE
  3. VITAMIN B COMPLEX [Concomitant]
     Active Substance: CYANOCOBALAMIN\DEXPANTHENOL\NIACINAMIDE\PYRIDOXINE HYDROCHLORIDE\RIBOFLAVIN 5^-PHOSPHATE SODIUM\THIAMINE HYDROCHLORIDE\VITAMIN B COMPLEX
  4. IMBRUVICA [Suspect]
     Active Substance: IBRUTINIB
     Indication: CHRONIC LYMPHOCYTIC LEUKAEMIA
     Route: 048
     Dates: start: 20150730, end: 2015
  5. IMBRUVICA [Suspect]
     Active Substance: IBRUTINIB
     Indication: CHRONIC LYMPHOCYTIC LEUKAEMIA
     Route: 048
  6. VITAMIN D3 [Concomitant]
     Active Substance: CHOLECALCIFEROL
  7. LEVOTHYROXINE. [Concomitant]
     Active Substance: LEVOTHYROXINE
  8. DIGITOXIN [Concomitant]
     Active Substance: DIGITOXIN
  9. OMEPRAZOLE. [Concomitant]
     Active Substance: OMEPRAZOLE
  10. IMBRUVICA [Suspect]
     Active Substance: IBRUTINIB
     Indication: CHRONIC LYMPHOCYTIC LEUKAEMIA
     Route: 048
     Dates: start: 2015
  11. NORVASC [Concomitant]
     Active Substance: AMLODIPINE BESYLATE
  12. DEPAKOTE [Concomitant]
     Active Substance: DIVALPROEX SODIUM
  13. DYMISTA [Concomitant]
     Active Substance: AZELASTINE HYDROCHLORIDE\FLUTICASONE PROPIONATE
  14. IMBRUVICA [Suspect]
     Active Substance: IBRUTINIB
     Indication: CHRONIC LYMPHOCYTIC LEUKAEMIA
     Route: 048
     Dates: start: 20151215
  15. IMBRUVICA [Suspect]
     Active Substance: IBRUTINIB
     Indication: CHRONIC LYMPHOCYTIC LEUKAEMIA
     Route: 048
     Dates: start: 20151216
  16. IMBRUVICA [Suspect]
     Active Substance: IBRUTINIB
     Indication: CHRONIC LYMPHOCYTIC LEUKAEMIA
     Dosage: 140 OR 280 MG
     Route: 048
  17. GLUCOSAMINE [Concomitant]
     Active Substance: GLUCOSAMINE
  18. ELIQUIS [Concomitant]
     Active Substance: APIXABAN
  19. DONEPEZIL. [Concomitant]
     Active Substance: DONEPEZIL
  20. ASPIRIN. [Concomitant]
     Active Substance: ASPIRIN
  21. LOVASTATIN. [Concomitant]
     Active Substance: LOVASTATIN
  22. TERBINAFINE. [Concomitant]
     Active Substance: TERBINAFINE
  23. COREG [Concomitant]
     Active Substance: CARVEDILOL

REACTIONS (7)
  - Muscle haemorrhage [Unknown]
  - Laboratory test abnormal [Unknown]
  - Dizziness [Unknown]
  - Red blood cell count decreased [Unknown]
  - Acute kidney injury [Unknown]
  - Renal failure [Unknown]
  - Renal impairment [Unknown]

NARRATIVE: CASE EVENT DATE: 201512
